FAERS Safety Report 4758877-6 (Version None)
Quarter: 2005Q3

REPORT INFORMATION
  Report Type: 
  Country: None (occurrence: None)
  Receive Date: 20050831
  Receipt Date: 20050823
  Transmission Date: 20060218
  Serious: Yes (Death, Hospitalization)
  Sender: FDA-Public Use
  Company Number: 05-08-1466

PATIENT
  Age: 57 Year
  Sex: Male

DRUGS (1)
  1. CLOZAPINE [Suspect]
     Indication: SCHIZOPHRENIA
     Dosage: 450MG QD ORAL
     Route: 048
     Dates: start: 19990401, end: 20050701

REACTIONS (2)
  - CHOKING [None]
  - LOSS OF CONSCIOUSNESS [None]
